FAERS Safety Report 5730375-2 (Version None)
Quarter: 2008Q2

REPORT INFORMATION
  Report Type: 
  Country: None (occurrence: None)
  Receive Date: 20080502
  Receipt Date: 20080423
  Transmission Date: 20081010
  Serious: Yes (Other)
  Sender: FDA-Public Use
  Company Number: 19198

PATIENT
  Age: 7 Year
  Sex: Male
  Weight: 22.9 kg

DRUGS (7)
  1. MITOXANTRONE [Suspect]
     Indication: ACUTE LYMPHOCYTIC LEUKAEMIA RECURRENT
     Dosage: 9 MG OTH IV
     Route: 042
     Dates: start: 20080229
  2. AMBISOME [Concomitant]
  3. ASPARAGINASE [Concomitant]
  4. DEXAMETHASONE TAB [Concomitant]
  5. METHOTREXATE [Concomitant]
  6. SEPTRIN [Concomitant]
  7. VINCRISTINE [Concomitant]

REACTIONS (1)
  - BRADYCARDIA [None]
